FAERS Safety Report 4658167-6 (Version None)
Quarter: 2005Q2

REPORT INFORMATION
  Report Type: 
  Country: None (occurrence: None)
  Receive Date: 20050509
  Receipt Date: 20050426
  Transmission Date: 20051028
  Serious: Yes (Other)
  Sender: FDA-Public Use
  Company Number: 2005065696

PATIENT
  Age: 83 Year
  Sex: Female

DRUGS (3)
  1. CELEBREX [Suspect]
     Indication: ARTHRITIS
     Dosage: 200 MG (200 MG, 1 IN 1 D), ORAL
     Route: 048
  2. PROPRANOLOL HYDROCHLORIDE [Concomitant]
  3. NICARDIPINE HCL [Concomitant]

REACTIONS (2)
  - ARTERIAL STENT INSERTION [None]
  - BODY HEIGHT DECREASED [None]
